FAERS Safety Report 4591872-9 (Version None)
Quarter: 2005Q1

REPORT INFORMATION
  Report Type: 
  Country: None (occurrence: None)
  Receive Date: 20050222
  Receipt Date: 20041102
  Transmission Date: 20050727
  Serious: Yes (Hospitalization)
  Sender: FDA-Public Use
  Company Number: ATO-04-0891

PATIENT
  Age: 66 Year
  Sex: Female

DRUGS (1)
  1. TRISENOX [Suspect]
     Indication: MYELODYSPLASTIC SYNDROME
     Dosage: 0.25 MG/KG (0.25 MG/KG, 5 DOSE LOAD), IVI
     Dates: start: 20041011, end: 20041015

REACTIONS (7)
  - FEELING ABNORMAL [None]
  - FLUID RETENTION [None]
  - HAEMATOCRIT DECREASED [None]
  - OEDEMA [None]
  - PLATELET COUNT DECREASED [None]
  - RETINOIC ACID SYNDROME [None]
  - WHITE BLOOD CELL COUNT DECREASED [None]
